FAERS Safety Report 23946631 (Version 2)
Quarter: 2024Q2

REPORT INFORMATION
  Report Type: Report from Study
  Country: US (occurrence: US)
  Receive Date: 20240606
  Receipt Date: 20240610
  Transmission Date: 20240716
  Serious: Yes (Other)
  Sender: FDA-Public Use
  Company Number: US-SANOFI-02074479

PATIENT
  Age: 58 Year
  Sex: Male

DRUGS (1)
  1. DUPILUMAB [Suspect]
     Active Substance: DUPILUMAB
     Indication: Dyspnoea
     Dosage: 300 MG, QOW

REACTIONS (5)
  - Multiple fractures [Unknown]
  - Injection site mass [Unknown]
  - Cough [Unknown]
  - Off label use [Unknown]
  - Injection site pain [Unknown]
